FAERS Safety Report 8234928 (Version 5)
Quarter: 2014Q2

REPORT INFORMATION
  Report Type: Report from Study
  Country: US (occurrence: US)
  Receive Date: 20111108
  Receipt Date: 20140527
  Transmission Date: 20141212
  Serious: Yes (Congenital Anomaly)
  Sender: FDA-Public Use
  Company Number: US-UCBSA-044686

PATIENT
  Age: 10 Day
  Sex: Male
  Weight: 3.4 kg

DRUGS (3)
  1. KEPPRA [Suspect]
     Indication: EPILEPSY
     Dosage: DAILY DOSE: 1500 MG
     Route: 064
  2. KEPPRA [Suspect]
     Indication: EPILEPSY
     Route: 063
  3. PRENATAL VITAMIN [Concomitant]
     Dosage: 1 CAP QD
     Route: 064

REACTIONS (3)
  - Congenital megacolon [Unknown]
  - Foetal exposure during pregnancy [Recovered/Resolved]
  - Exposure during breast feeding [Recovered/Resolved]
